FAERS Safety Report 9424411 (Version 1)
Quarter: 2013Q3

REPORT INFORMATION
  Report Type: Spontaneous
  Country: US (occurrence: None)
  Receive Date: 20130726
  Receipt Date: 20130726
  Transmission Date: 20140515
  Serious: Yes (Hospitalization)
  Sender: FDA-Public Use
  Company Number: None

PATIENT
  Age: 72 Year
  Sex: Male
  Weight: 61.1 kg

DRUGS (4)
  1. RIVAROXABAN [Suspect]
     Indication: FACTOR V LEIDEN MUTATION
     Dates: start: 20130620, end: 20130717
  2. RIVAROXABAN [Suspect]
     Indication: PROTEIN S DEFICIENCY
     Dates: start: 20130620, end: 20130717
  3. RIVAROXABAN [Suspect]
     Indication: DEEP VEIN THROMBOSIS
     Dates: start: 20130620, end: 20130717
  4. RIVAROXABAN [Suspect]
     Indication: CEREBROVASCULAR ACCIDENT
     Dates: start: 20130620, end: 20130717

REACTIONS (7)
  - Subdural haematoma [None]
  - Asthenia [None]
  - Decreased appetite [None]
  - Haematocrit decreased [None]
  - Adenoma benign [None]
  - Haemorrhage [None]
  - Haemoglobin decreased [None]
